FAERS Safety Report 5959702-8 (Version None)
Quarter: 2008Q4

REPORT INFORMATION
  Report Type: 
  Country: None (occurrence: None)
  Receive Date: 20081119
  Receipt Date: 20081119
  Transmission Date: 20090506
  Serious: No
  Sender: FDA-Public Use
  Company Number: None

PATIENT
  Age: 59 Year
  Sex: Female
  Weight: 123 kg

DRUGS (9)
  1. VANCOMYCIN [Suspect]
     Indication: STAPHYLOCOCCAL INFECTION
     Dosage: 1.75 GM IV Q12 HOURS
     Route: 042
     Dates: start: 20080609, end: 20080611
  2. ATIVAN [Suspect]
     Indication: SEDATION
     Dosage: 1MG/HR IV CI
     Route: 042
  3. CEFEPIME [Concomitant]
  4. HEPARIN [Concomitant]
  5. INSULIN GLARGINE [Concomitant]
  6. LANSOPRAZOLE [Concomitant]
  7. LOSARTAN POTASSIUM [Concomitant]
  8. DOCUSATE [Concomitant]
  9. SENNA [Concomitant]

REACTIONS (3)
  - INJURY [None]
  - NECROSIS [None]
  - OEDEMA PERIPHERAL [None]
